FAERS Safety Report 12989686 (Version 1)
Quarter: 2016Q4

REPORT INFORMATION
  Report Type: Spontaneous
  Country: US (occurrence: US)
  Receive Date: 20161201
  Receipt Date: 20161201
  Transmission Date: 20170207
  Serious: Yes (Other)
  Sender: FDA-Public Use
  Company Number: US-CLINIGEN GROUP PLC/ CLINIGEN HEALTHCARE LTD-E2B_00002177

PATIENT
  Age: 59 Year
  Sex: Female
  Weight: 93 kg

DRUGS (10)
  1. CISPLATIN. [Suspect]
     Active Substance: CISPLATIN
     Indication: OVARIAN CANCER
     Dosage: UNKNOWN
     Route: 042
  2. NEUPOGEN [Concomitant]
     Active Substance: FILGRASTIM
     Route: 065
  3. DECADRON [Concomitant]
     Active Substance: DEXAMETHASONE
     Route: 065
  4. GEMZAR [Suspect]
     Active Substance: GEMCITABINE HYDROCHLORIDE
     Indication: OVARIAN CANCER
     Dosage: UNKNOWN
     Route: 042
  5. ACTIMMUNE (INTERFERON GAMMA-1B) [Concomitant]
     Route: 065
  6. ETHYOL [Suspect]
     Active Substance: AMIFOSTINE
     Indication: PROPHYLAXIS
     Dosage: 1000 MG QWK 15 DAY(S)
     Route: 042
     Dates: start: 20021023, end: 20021106
  7. ZOFRAN (ONDANSETRON) [Concomitant]
     Route: 065
  8. PHENERGAN [Concomitant]
     Active Substance: PROMETHAZINE HYDROCHLORIDE
     Route: 065
  9. CLARITIN [Concomitant]
     Active Substance: LORATADINE
     Route: 065
  10. PHENERGAN W/ CODEINE [Concomitant]
     Active Substance: CODEINE PHOSPHATE\PROMETHAZINE HYDROCHLORIDE
     Route: 065

REACTIONS (4)
  - Vomiting [Unknown]
  - Dyskinesia [Recovered/Resolved]
  - Neutropenia [Unknown]
  - Discomfort [Unknown]

NARRATIVE: CASE EVENT DATE: 20021023
